FAERS Safety Report 24665841 (Version 2)
Quarter: 2024Q4

REPORT INFORMATION
  Report Type: Spontaneous
  Country: US (occurrence: US)
  Receive Date: 20241126
  Receipt Date: 20241127
  Transmission Date: 20250115
  Serious: Yes (Other)
  Sender: MERCK
  Company Number: US-009507513-2411USA009050

PATIENT
  Age: 65 Year
  Sex: Male

DRUGS (3)
  1. KEYTRUDA [Suspect]
     Active Substance: PEMBROLIZUMAB
     Indication: Thyroid cancer
     Dosage: UNK
  2. DABRAFENIB [Concomitant]
     Active Substance: DABRAFENIB
     Indication: Thyroid cancer
  3. TRAMETINIB [Concomitant]
     Active Substance: TRAMETINIB
     Indication: Thyroid cancer

REACTIONS (2)
  - Glomerulonephritis membranous [Recovered/Resolved]
  - Glomerulonephritis minimal lesion [Recovered/Resolved]
